FAERS Safety Report 6344189-6 (Version None)
Quarter: 2009Q3

REPORT INFORMATION
  Report Type: 
  Country: None (occurrence: None)
  Receive Date: 20090908
  Receipt Date: 20090827
  Transmission Date: 20100115
  Serious: Yes (Other)
  Sender: FDA-Public Use
  Company Number: GB-PFIZER INC-2009260712

PATIENT

DRUGS (1)
  1. ISTIN [Suspect]

REACTIONS (1)
  - DYSPHAGIA [None]
